FAERS Safety Report 5563433-6 (Version None)
Quarter: 2007Q4

REPORT INFORMATION
  Report Type: 
  Country: None (occurrence: None)
  Receive Date: 20071217
  Receipt Date: 20070518
  Transmission Date: 20080405
  Serious: No
  Sender: FDA-Public Use
  Company Number: US-ASTRAZENECA-2007UW12450

PATIENT
  Age: 70 Year
  Sex: Male
  Weight: 68.9 kg

DRUGS (3)
  1. CRESTOR [Suspect]
     Indication: BLOOD CHOLESTEROL INCREASED
     Route: 048
     Dates: start: 20070501
  2. FLOMAX [Concomitant]
  3. METOPROLOL [Concomitant]
     Route: 048

REACTIONS (3)
  - FATIGUE [None]
  - MUSCLE FATIGUE [None]
  - SENSATION OF HEAVINESS [None]
